FAERS Safety Report 9675822 (Version 1)
Quarter: 2013Q4

REPORT INFORMATION
  Report Type: Spontaneous
  Country: US (occurrence: US)
  Receive Date: 20131107
  Receipt Date: 20131107
  Transmission Date: 20140711
  Serious: Yes (Other)
  Sender: FDA-Public Use
  Company Number: US-GLAXOSMITHKLINE-A1047742A

PATIENT
  Age: 59 Year
  Sex: Female

DRUGS (15)
  1. LOVAZA [Suspect]
     Indication: VITAMIN D
     Dosage: 2G PER DAY
     Route: 048
     Dates: start: 2000
  2. OXYCODONE [Concomitant]
  3. VALIUM [Concomitant]
  4. DIAZEPAM [Concomitant]
  5. VITAMIN D [Concomitant]
     Dosage: 50000UNIT WEEKLY
  6. CYCLOBENZAPRINE HYDROCHLORIDE [Concomitant]
  7. UNKNOWN [Concomitant]
  8. HYOSCYAMINE [Concomitant]
  9. PROMETHAZINE [Concomitant]
  10. VITAMIN [Concomitant]
  11. TRIAZOLAM [Concomitant]
  12. SONATA [Concomitant]
  13. SEROQUEL [Concomitant]
  14. CHLORAL HYDRATE [Concomitant]
  15. SUPPOSITORY [Concomitant]

REACTIONS (7)
  - Metal poisoning [Not Recovered/Not Resolved]
  - Headache [Unknown]
  - White blood cell count increased [Unknown]
  - Hepatic enzyme increased [Unknown]
  - Blood glucose increased [Unknown]
  - Dizziness [Unknown]
  - Weight increased [Unknown]
